FAERS Safety Report 8216949-8 (Version None)
Quarter: 2012Q1

REPORT INFORMATION
  Report Type: 
  Country: None (occurrence: None)
  Receive Date: 20120319
  Receipt Date: 20120305
  Transmission Date: 20120608
  Serious: Yes (Death, Other)
  Sender: FDA-Public Use
  Company Number: IT-BRISTOL-MYERS SQUIBB COMPANY-16455578

PATIENT
  Age: 62 Year
  Sex: Male

DRUGS (13)
  1. IFOSFAMIDE [Suspect]
     Indication: NON-HODGKIN'S LYMPHOMA
     Dates: start: 20070201, end: 20070501
  2. EPIRUBICIN [Suspect]
     Indication: NON-HODGKIN'S LYMPHOMA
     Dates: start: 20070201, end: 20070501
  3. BLEOMYCIN SULFATE [Suspect]
     Indication: NON-HODGKIN'S LYMPHOMA
  4. PREDNISONE [Suspect]
     Indication: NON-HODGKIN'S LYMPHOMA
     Dosage: ALSO UNDER P-VABEC REGIMEN
     Dates: start: 20050901, end: 20060101
  5. VINCRISTINE SULFATE [Suspect]
     Indication: NON-HODGKIN'S LYMPHOMA
     Dosage: ALSO UNDER P-VABEC REGIEMN
     Dates: start: 20050901, end: 20060101
  6. CYTARABINE [Suspect]
     Indication: NON-HODGKIN'S LYMPHOMA
     Dates: start: 20080301, end: 20080701
  7. RITUXIMAB [Suspect]
     Indication: NON-HODGKIN'S LYMPHOMA
     Dosage: UNDER R-DHAP REGIMEN:MAR-2008 TO JUL-2008
     Dates: start: 20050901, end: 20060101
  8. CYCLOPHOSPHAMIDE [Suspect]
     Indication: NON-HODGKIN'S LYMPHOMA
     Dosage: ALSO UNDER P-VABEC REGIEMN
     Dates: start: 20050901, end: 20060101
  9. IBRITUMOMAB TIUXETAN [Suspect]
     Indication: NON-HODGKIN'S LYMPHOMA
  10. DEXAMETHASONE [Suspect]
     Indication: NON-HODGKIN'S LYMPHOMA
     Dates: start: 20080301, end: 20080701
  11. CISPLATIN [Suspect]
     Indication: NON-HODGKIN'S LYMPHOMA
     Dates: start: 20080301, end: 20080701
  12. DOXORUBICIN HCL [Suspect]
     Indication: NON-HODGKIN'S LYMPHOMA
     Dosage: ALSO UNDER P-VABEC REGIEMN
     Dates: start: 20050901, end: 20060101
  13. ETOPOSIDE [Suspect]
     Indication: NON-HODGKIN'S LYMPHOMA
     Dosage: ALSO UNDER P-VABEC REGIEMN
     Dates: start: 20070201, end: 20070501

REACTIONS (2)
  - MYELODYSPLASTIC SYNDROME [None]
  - CARDIAC FAILURE [None]
